FAERS Safety Report 26034470 (Version 1)
Quarter: 2025Q4

REPORT INFORMATION
  Report Type: Spontaneous
  Country: US (occurrence: US)
  Receive Date: 20251112
  Receipt Date: 20251112
  Transmission Date: 20260117
  Serious: No
  Sender: PFIZER
  Company Number: US-PFIZER INC-202500220228

PATIENT
  Age: 79 Year
  Sex: Female

DRUGS (1)
  1. IBRANCE [Suspect]
     Active Substance: PALBOCICLIB
     Indication: Breast cancer female
     Dosage: 100 MG, CYCLIC (FOR 21 DAYS ON,7 DAYS OFF)
     Route: 048

REACTIONS (4)
  - Nausea [Unknown]
  - Alopecia [Unknown]
  - Asthenia [Unknown]
  - White blood cell count decreased [Unknown]
